FAERS Safety Report 18212875 (Version 1)
Quarter: 2020Q3

REPORT INFORMATION
  Report Type: Spontaneous
  Country: FR (occurrence: FR)
  Receive Date: 20200831
  Receipt Date: 20200831
  Transmission Date: 20201103
  Serious: Yes (Other)
  Sender: FDA-Public Use
  Company Number: FR-TEVA-2020-FR-1821038

PATIENT
  Age: 25 Year
  Sex: Female

DRUGS (4)
  1. CODEINE [Suspect]
     Active Substance: CODEINE
     Dosage: 10 DOSAGEFORM
     Route: 048
     Dates: start: 2016
  2. BROMAZEPAM [Concomitant]
     Active Substance: BROMAZEPAM
     Dosage: 2 DOSAGEFORM
     Route: 048
  3. TRAMADOL BASE [Suspect]
     Active Substance: TRAMADOL
     Dosage: UP TO 200MG / DAY REGULARLY
     Route: 048
  4. PARACETAMOL [Suspect]
     Active Substance: ACETAMINOPHEN
     Dosage: 10 DOSAGEFORM
     Route: 048
     Dates: start: 2016

REACTIONS (1)
  - Drug dependence [Not Recovered/Not Resolved]

NARRATIVE: CASE EVENT DATE: 2016
